FAERS Safety Report 5582020-7 (Version None)
Quarter: 2007Q4

REPORT INFORMATION
  Report Type: 
  Country: None (occurrence: None)
  Receive Date: 20071130
  Receipt Date: 20070216
  Transmission Date: 20080405
  Serious: Yes (Other)
  Sender: FDA-Public Use
  Company Number: WAES 0702USA03433

PATIENT
  Age: 79 Year
  Sex: Female
  Weight: 44.9061 kg

DRUGS (10)
  1. FOSAMAX [Suspect]
     Indication: OSTEOPOROSIS
     Dosage: 10 MG/DAILY/PO
     Route: 048
     Dates: start: 19951201, end: 20060829
  2. CELEBREX [Concomitant]
  3. FORTEO [Concomitant]
  4. PRILOSEC [Concomitant]
  5. TALACEN [Concomitant]
  6. CALCIUM [Concomitant]
  7. FOLIC ACID [Concomitant]
  8. IRON [Concomitant]
  9. METHOTREXATE [Concomitant]
  10. PREDNISONE TAB [Concomitant]

REACTIONS (4)
  - OSTEOMYELITIS [None]
  - OSTEONECROSIS [None]
  - TOOTH DISORDER [None]
  - WEIGHT DECREASED [None]
